FAERS Safety Report 18306587 (Version 1)
Quarter: 2020Q3

REPORT INFORMATION
  Report Type: Spontaneous
  Country: US (occurrence: US)
  Receive Date: 20200923
  Receipt Date: 20200923
  Transmission Date: 20201103
  Serious: Yes (Hospitalization)
  Sender: FDA-Public Use
  Company Number: None

PATIENT
  Age: 53 Year
  Sex: Male
  Weight: 117.93 kg

DRUGS (1)
  1. PRAZOSIN (PRAZOSIN HCL 2MG CAP) [Suspect]
     Active Substance: PRAZOSIN
     Indication: POST-TRAUMATIC STRESS DISORDER
     Route: 048
     Dates: start: 20200224, end: 20200805

REACTIONS (1)
  - Priapism [None]

NARRATIVE: CASE EVENT DATE: 20200805
